FAERS Safety Report 10031764 (Version 1)
Quarter: 2014Q1

REPORT INFORMATION
  Report Type: Spontaneous
  Country: NL (occurrence: NL)
  Receive Date: 20140324
  Receipt Date: 20140324
  Transmission Date: 20141002
  Serious: Yes (Hospitalization)
  Sender: FDA-Public Use
  Company Number: NL-SA-2014SA031819

PATIENT
  Age: 81 Year
  Sex: Female

DRUGS (13)
  1. CEFOTAXIM [Suspect]
     Indication: PNEUMONIA
     Route: 042
     Dates: start: 201312
  2. ACENOCOUMAROL [Interacting]
     Indication: PNEUMONIA
     Dosage: DOSE ACCORDING TO THROBOSIS SERVICE
     Route: 048
     Dates: start: 2005, end: 201401
  3. RISEDRONIC ACID [Concomitant]
     Route: 048
  4. PANTOPRAZOLE [Concomitant]
     Route: 048
  5. TEMAZEPAM [Concomitant]
     Dosage: 10MG?DOSE: 1DD1 AS NEEDED
     Route: 048
  6. AMLODIPINE [Concomitant]
     Dosage: AMLODIPINE TABLET 5MG (MALEAAT)
     Route: 048
  7. BISOPROLOL [Concomitant]
     Dosage: 10MG
     Route: 048
  8. CALCIUM CARBONATE [Concomitant]
     Dosage: CALCI CHEW D3 KAUWTABLET 500MG/400IE
     Route: 048
  9. VENLAFAXINE [Concomitant]
     Dosage: VENLAFAXINE CAPSULE MGA 150MG
     Route: 048
  10. MOVICOLON [Concomitant]
     Dosage: MOVICOLON POEDER VOOR DRANK IN SACHET
     Route: 048
  11. SERETIDE [Concomitant]
     Dosage: AEROSOL 25/125MCG/DO CFKVR SPBS 120DO+INH?DOSE:2DD 25/250MCG
     Route: 055
  12. SPIRIVA [Concomitant]
     Dosage: INHALPDR 18MCG
     Route: 055
  13. DOXYCYCLINE [Concomitant]
     Route: 048
     Dates: start: 20121217

REACTIONS (3)
  - International normalised ratio increased [Recovered/Resolved]
  - Drug interaction [Unknown]
  - Factor V inhibition [Recovered/Resolved]
